FAERS Safety Report 19997966 (Version 2)
Quarter: 2021Q4

REPORT INFORMATION
  Report Type: Report from Study
  Country: CA (occurrence: CA)
  Receive Date: 20211026
  Receipt Date: 20211030
  Transmission Date: 20220303
  Serious: Yes (Hospitalization, Other)
  Sender: FDA-Public Use
  Company Number: CA-HLS-202108540

PATIENT
  Age: 33 Year
  Sex: Male
  Weight: 141 kg

DRUGS (2)
  1. CLOZARIL [Suspect]
     Active Substance: CLOZAPINE
     Indication: Product used for unknown indication
     Dosage: 125 MG AT BEDTIME
     Route: 048
     Dates: start: 20210728
  2. CLOZARIL [Suspect]
     Active Substance: CLOZAPINE
     Indication: Product used for unknown indication
     Dosage: 125 MG PO QHS
     Route: 048
     Dates: start: 20210726

REACTIONS (11)
  - Dyspnoea [Unknown]
  - Neutrophil count decreased [Not Recovered/Not Resolved]
  - Back pain [Unknown]
  - Chest pain [Unknown]
  - Constipation [Unknown]
  - C-reactive protein increased [Unknown]
  - Obesity [Unknown]
  - Salivary hypersecretion [Unknown]
  - Tachycardia [Unknown]
  - Drug intolerance [Unknown]
  - White blood cell count decreased [Not Recovered/Not Resolved]

NARRATIVE: CASE EVENT DATE: 20210824
